FAERS Safety Report 23067890 (Version 2)
Quarter: 2023Q4

REPORT INFORMATION
  Report Type: Spontaneous
  Country: US (occurrence: US)
  Receive Date: 20231016
  Receipt Date: 20231025
  Transmission Date: 20240109
  Serious: Yes (Death, Life-Threatening, Hospitalization, Other)
  Sender: FDA-Public Use
  Company Number: US-CIPLA LTD.-2023US06311

PATIENT

DRUGS (1)
  1. AMLODIPINE [Suspect]
     Active Substance: AMLODIPINE BESYLATE
     Dosage: 52 DOSAGE FORM, SINGLE
     Route: 048

REACTIONS (12)
  - Suicide attempt [Fatal]
  - Hypokalaemia [Fatal]
  - Cardiac arrest [Fatal]
  - Brain injury [Fatal]
  - Lactic acidosis [Fatal]
  - Intentional overdose [Fatal]
  - Toxicity to various agents [Fatal]
  - Non-cardiogenic pulmonary oedema [Fatal]
  - Cardiogenic shock [Fatal]
  - Hypoxia [Fatal]
  - Distributive shock [Fatal]
  - Hypotension [Fatal]
